FAERS Safety Report 7357272-3 (Version None)
Quarter: 2011Q1

REPORT INFORMATION
  Report Type: 
  Country: None (occurrence: None)
  Receive Date: 20110311
  Receipt Date: 20110311
  Transmission Date: 20110831
  Serious: Yes (Other)
  Sender: FDA-Public Use
  Company Number: None

PATIENT
  Sex: Female
  Weight: 90.9 kg

DRUGS (1)
  1. ALENDRONATE SODIUM [Suspect]
     Indication: OSTEOPOROSIS
     Dosage: 70MG 1 WEEKLY ORAL
     Route: 048
     Dates: start: 20090711, end: 20110219

REACTIONS (6)
  - GAIT DISTURBANCE [None]
  - ALOPECIA [None]
  - ARTHRALGIA [None]
  - NAIL DISORDER [None]
  - SENSITIVITY OF TEETH [None]
  - GASTROOESOPHAGEAL REFLUX DISEASE [None]
